FAERS Safety Report 17920028 (Version 2)
Quarter: 2020Q3

REPORT INFORMATION
  Report Type: Spontaneous
  Country: IT (occurrence: IT)
  Receive Date: 20200620
  Receipt Date: 20200702
  Transmission Date: 20201103
  Serious: Yes (Death)
  Sender: FDA-Public Use
  Company Number: NVSC2020IT172642

PATIENT
  Age: 73 Year
  Sex: Male

DRUGS (1)
  1. ILARIS [Suspect]
     Active Substance: CANAKINUMAB
     Indication: CORONAVIRUS INFECTION
     Dosage: 300 MG, ONCE/SINGLE (TOTAL)
     Route: 058
     Dates: start: 20200401, end: 20200401

REACTIONS (2)
  - Condition aggravated [Fatal]
  - Off label use [Fatal]

NARRATIVE: CASE EVENT DATE: 20200402
